FAERS Safety Report 14142744 (Version 2)
Quarter: 2017Q4

REPORT INFORMATION
  Report Type: Report from Study
  Country: NL (occurrence: NL)
  Receive Date: 20171030
  Receipt Date: 20171120
  Transmission Date: 20180321
  Serious: Yes (Other)
  Sender: FDA-Public Use
  Company Number: NL-IPSEN BIOPHARMACEUTICALS, INC.-2017-12720

PATIENT
  Age: 65 Year
  Sex: Male

DRUGS (5)
  1. CANNABIS OIL [Concomitant]
  2. ACECOUMAROL [Concomitant]
     Dosage: ACCORDING TO THE INTERNATIONAL NORMALIZED RATIO
  3. OMEPRAZOLE. [Concomitant]
     Active Substance: OMEPRAZOLE
  4. SOMATULINE AUTOSOLUTION 90MG [Suspect]
     Active Substance: LANREOTIDE ACETATE
     Indication: SHORT-BOWEL SYNDROME
     Dosage: 90 MG
     Route: 058
     Dates: start: 20150403
  5. SOMATULINE AUTOSOLUTION 90MG [Suspect]
     Active Substance: LANREOTIDE ACETATE
     Indication: OFF LABEL USE

REACTIONS (4)
  - Pain in jaw [Recovered/Resolved]
  - Abscess jaw [Recovered/Resolved]
  - Inappropriate schedule of drug administration [Unknown]
  - Off label use [Unknown]

NARRATIVE: CASE EVENT DATE: 201710
